FAERS Safety Report 5961611-5 (Version None)
Quarter: 2008Q4

REPORT INFORMATION
  Report Type: 
  Country: None (occurrence: None)
  Receive Date: 20081121
  Receipt Date: 20081112
  Transmission Date: 20090506
  Serious: Yes (Hospitalization, Other)
  Sender: FDA-Public Use
  Company Number: PHHO2008FI12214

PATIENT
  Sex: Female
  Weight: 55 kg

DRUGS (5)
  1. TASIGNA [Suspect]
     Indication: CHRONIC MYELOID LEUKAEMIA
     Dosage: 400 MG, BID
     Route: 048
     Dates: start: 20071122, end: 20080709
  2. TASIGNA [Suspect]
     Dosage: UNK
     Dates: start: 20080731, end: 20081010
  3. BISOPROLOL FUMARATE [Concomitant]
     Indication: PALPITATIONS
     Dosage: UNK
  4. THYROXIN [Concomitant]
     Indication: HYPOTHYROIDISM
     Dosage: UNK
  5. ARCOXIA [Concomitant]
     Indication: ARTHRALGIA
     Dosage: UNK

REACTIONS (3)
  - MIGRAINE [None]
  - PAIN IN EXTREMITY [None]
  - VASCULITIS [None]
